FAERS Safety Report 21114732 (Version 2)
Quarter: 2022Q4

REPORT INFORMATION
  Report Type: Report from Study
  Country: US (occurrence: US)
  Receive Date: 20220721
  Receipt Date: 20221013
  Transmission Date: 20230113
  Serious: Yes (Death, Other)
  Sender: FDA-Public Use
  Company Number: US-BAYER-2022A093970

PATIENT
  Age: 56 Year
  Sex: Female

DRUGS (2)
  1. STIVARGA [Suspect]
     Active Substance: REGORAFENIB
     Indication: Rectal cancer
     Dosage: DAILY DOSE 80 MG
  2. STIVARGA [Suspect]
     Active Substance: REGORAFENIB
     Indication: Rectal cancer
     Dosage: DAILY DOSE 120 MG

REACTIONS (9)
  - Death [Fatal]
  - Haemorrhage [None]
  - Fistula [Not Recovered/Not Resolved]
  - Hyperbilirubinaemia [Not Recovered/Not Resolved]
  - Off label use [None]
  - Haemorrhage [Not Recovered/Not Resolved]
  - Fistula [Not Recovered/Not Resolved]
  - Liver disorder [Not Recovered/Not Resolved]
  - Muscle spasms [Not Recovered/Not Resolved]

NARRATIVE: CASE EVENT DATE: 20210322
